FAERS Safety Report 12325986 (Version 2)
Quarter: 2019Q2

REPORT INFORMATION
  Report Type: Spontaneous
  Country: US (occurrence: US)
  Receive Date: 20160503
  Receipt Date: 20190415
  Transmission Date: 20190711
  Serious: Yes (Other)
  Sender: FDA-Public Use
  Company Number: US-RECKITT BENCKISER HEALTHCARE INT LIMITED-RB-85045-2016

PATIENT
  Age: 27 Year
  Sex: Female

DRUGS (2)
  1. MAXIMUM STRENGTH MUCINEX SINUS-MAX SEVERE CONGESTION AND PAIN [Suspect]
     Active Substance: ACETAMINOPHEN\GUAIFENESIN\PHENYLEPHRINE HYDROCHLORIDE
     Indication: PRODUCT USED FOR UNKNOWN INDICATION
     Dosage: 2 DF, QD
     Route: 065
     Dates: start: 20160424
  2. MAXIMUM STRENGTH MUCINEX SINUS-MAX SEVERE CONGESTION AND PAIN [Suspect]
     Active Substance: ACETAMINOPHEN\GUAIFENESIN\PHENYLEPHRINE HYDROCHLORIDE
     Dosage: 3 DF, QD
     Route: 065
     Dates: start: 20160425

REACTIONS (2)
  - Blood pressure increased [Recovered/Resolved]
  - Palpitations [Recovered/Resolved]

NARRATIVE: CASE EVENT DATE: 20160426
